FAERS Safety Report 22234381 (Version 1)
Quarter: 2023Q2

REPORT INFORMATION
  Report Type: Spontaneous
  Country: US (occurrence: None)
  Receive Date: 20230420
  Receipt Date: 20230420
  Transmission Date: 20230721
  Serious: No
  Sender: FDA-Public Use
  Company Number: US-ROCHE-3196154

PATIENT
  Age: 76 Year
  Sex: Male
  Weight: 72.6 kg

DRUGS (7)
  1. ESBRIET [Suspect]
     Active Substance: PIRFENIDONE
     Indication: Product used for unknown indication
     Route: 065
     Dates: start: 2019, end: 202201
  2. TYVASO [Suspect]
     Active Substance: TREPROSTINIL
     Indication: Pulmonary arterial hypertension
     Dosage: CONCENTRATION OF 0.6 MG/ML
     Route: 055
     Dates: start: 20220125
  3. OFEV [Suspect]
     Active Substance: NINTEDANIB
     Indication: Product used for unknown indication
     Route: 065
     Dates: start: 202201
  4. IMODIUM [Suspect]
     Active Substance: LOPERAMIDE HYDROCHLORIDE
     Indication: Diarrhoea
     Route: 065
  5. TYVASO [Suspect]
     Active Substance: TREPROSTINIL
     Indication: Pulmonary arterial hypertension
     Route: 055
     Dates: start: 20221010
  6. TYVASO [Suspect]
     Active Substance: TREPROSTINIL
     Indication: Product used for unknown indication
     Route: 055
     Dates: start: 202210
  7. LOMOTIL [Suspect]
     Active Substance: ATROPINE SULFATE\DIPHENOXYLATE HYDROCHLORIDE
     Indication: Diarrhoea
     Route: 065
     Dates: start: 202208

REACTIONS (10)
  - Rash [Unknown]
  - Secretion discharge [Unknown]
  - Therapy non-responder [Unknown]
  - Therapeutic response delayed [Unknown]
  - Diarrhoea [Recovering/Resolving]
  - Muscle spasms [Unknown]
  - Abdominal pain [Unknown]
  - Constipation [Unknown]
  - Muscle spasms [Unknown]
  - Off label use [Unknown]

NARRATIVE: CASE EVENT DATE: 20220101
